FAERS Safety Report 9310263 (Version 3)
Quarter: 2013Q2

REPORT INFORMATION
  Report Type: Spontaneous
  Country: US (occurrence: US)
  Receive Date: 20130527
  Receipt Date: 20130612
  Transmission Date: 20140414
  Serious: Yes (Death, Other)
  Sender: FDA-Public Use
  Company Number: PHEH2013US011438

PATIENT
  Sex: Male

DRUGS (1)
  1. NEORAL [Suspect]

REACTIONS (1)
  - Complications of transplant surgery [Fatal]
